FAERS Safety Report 18665019 (Version 1)
Quarter: 2020Q4

REPORT INFORMATION
  Report Type: Spontaneous
  Country: DE (occurrence: DE)
  Receive Date: 20201225
  Receipt Date: 20201225
  Transmission Date: 20210114
  Serious: Yes (Hospitalization, Other)
  Sender: FDA-Public Use
  Company Number: DE-TEVA-2020-DE-1860881

PATIENT
  Age: 58 Year
  Sex: Female
  Weight: 65 kg

DRUGS (11)
  1. TAMOXIFEN [Suspect]
     Active Substance: TAMOXIFEN
     Dosage: 20 MILLIGRAM DAILY; 1-0-0-0
  2. ALEPAFORT [Concomitant]
     Dosage: 208.9 MILLIGRAM DAILY; 1-0-0-0
  3. EISEN(II) [Concomitant]
     Dosage: 80 MILLIGRAM DAILY; 40 MG, 1-0-1-0
  4. VITAMIN B12-LOGES INJEKTIONSLOSUNG [Concomitant]
     Dosage: 1 DOSAGE FORMS DAILY; 1-0-0-0
  5. HEPAR-SL FORTE 600MG [Concomitant]
     Dosage: 600 MILLIGRAM DAILY; 1-0-0-0
  6. COLECALCIFEROL (VITAMIN D) [Concomitant]
     Dosage: 1 DOSAGE FORMS DAILY; 1000 IE, 1-0-0-0
  7. PREGABALIN. [Suspect]
     Active Substance: PREGABALIN
     Dosage: 25 MG, 1-0-2-0
  8. SELEN(IV)-ION [Concomitant]
  9. FOLSAURE [Concomitant]
     Active Substance: FOLIC ACID
     Dosage: 5 MILLIGRAM DAILY; 1-0-0-0
  10. METAMIZOL [Concomitant]
     Active Substance: METAMIZOLE SODIUM
     Dosage: 500 MG, AS NEEDED
  11. CALCIMAGON D3 500MG/400I.E. [Concomitant]
     Dosage: 1 DOSAGE FORMS DAILY; 500 | 400 MG / IU, 0-1-0-0

REACTIONS (4)
  - Nausea [Unknown]
  - Hepatic cirrhosis [Unknown]
  - Jaundice [Unknown]
  - Ascites [Unknown]
